FAERS Safety Report 18606792 (Version 2)
Quarter: 2020Q4

REPORT INFORMATION
  Report Type: Report from Study
  Country: JP (occurrence: JP)
  Receive Date: 20201211
  Receipt Date: 20201214
  Transmission Date: 20210114
  Serious: Yes (Hospitalization, Other)
  Sender: FDA-Public Use
  Company Number: JP-BRISTOL-MYERS SQUIBB COMPANY-BMS-2020-089881

PATIENT
  Age: 77 Year
  Sex: Female
  Weight: 40.3 kg

DRUGS (2)
  1. IPILIMUMAB [Suspect]
     Active Substance: IPILIMUMAB
     Indication: METASTATIC RENAL CELL CARCINOMA
     Dosage: 1 MILLIGRAM/KILOGRAM, ONE TIME DOSE
     Route: 041
     Dates: start: 20201019, end: 20201110
  2. NIVOLUMAB [Suspect]
     Active Substance: NIVOLUMAB
     Indication: METASTATIC RENAL CELL CARCINOMA
     Dosage: 240 MILLIGRAM, ONE TIME DOSE
     Route: 041
     Dates: start: 20201019, end: 20201110

REACTIONS (5)
  - Device related infection [Not Recovered/Not Resolved]
  - Pyrexia [Unknown]
  - Pancytopenia [Not Recovered/Not Resolved]
  - Thyroiditis [Not Recovered/Not Resolved]
  - Catheter site erythema [Unknown]

NARRATIVE: CASE EVENT DATE: 20201023
